FAERS Safety Report 12994383 (Version 3)
Quarter: 2017Q3

REPORT INFORMATION
  Report Type: Spontaneous
  Country: HU (occurrence: HU)
  Receive Date: 20161202
  Receipt Date: 20170728
  Transmission Date: 20171127
  Serious: Yes (Death, Other)
  Sender: FDA-Public Use
  Company Number: HU-ARIAD-2016HU007360

PATIENT

DRUGS (1)
  1. ICLUSIG [Suspect]
     Active Substance: PONATINIB
     Indication: CHRONIC MYELOID LEUKAEMIA
     Dosage: 30 MG, QD
     Route: 048
     Dates: start: 201608, end: 201610

REACTIONS (1)
  - Neoplasm progression [Fatal]
